FAERS Safety Report 8127863-0 (Version None)
Quarter: 2012Q1

REPORT INFORMATION
  Report Type: 
  Country: None (occurrence: None)
  Receive Date: 20120210
  Receipt Date: 20110920
  Transmission Date: 20120608
  Serious: No
  Sender: FDA-Public Use
  Company Number: US-GLAXOSMITHKLINE-A0945303A

PATIENT
  Age: 50 Year
  Sex: Female

DRUGS (2)
  1. NO CONCURRENT MEDICATION [Concomitant]
  2. PAXIL [Suspect]
     Indication: DEPRESSION
     Dosage: 20MG PER DAY
     Route: 048
     Dates: start: 19980101, end: 20040101

REACTIONS (5)
  - OBSESSIVE-COMPULSIVE DISORDER [None]
  - DRUG ADMINISTRATION ERROR [None]
  - PATHOLOGICAL GAMBLING [None]
  - EXPIRED DRUG ADMINISTERED [None]
  - GAMBLING [None]
